FAERS Safety Report 4638460-3 (Version None)
Quarter: 2005Q2

REPORT INFORMATION
  Report Type: 
  Country: None (occurrence: None)
  Receive Date: 20050418
  Receipt Date: 20050404
  Transmission Date: 20051028
  Serious: Yes (Hospitalization)
  Sender: FDA-Public Use
  Company Number: 2005055651

PATIENT
  Age: 77 Year
  Sex: Male

DRUGS (1)
  1. LINEZOLID TABLET (LINEZOLID) [Suspect]
     Indication: SEPSIS
     Dosage: 1200 MG 9600 MG, BID), ORAL
     Route: 048
     Dates: start: 20041001, end: 20041101

REACTIONS (1)
  - OVERDOSE [None]
